FAERS Safety Report 14999659 (Version 1)
Quarter: 2018Q2

REPORT INFORMATION
  Report Type: Spontaneous
  Country: US (occurrence: US)
  Receive Date: 20180522
  Receipt Date: 20180522
  Transmission Date: 20180711
  Serious: Yes (Other)
  Sender: FDA-Public Use
  Company Number: None

PATIENT
  Age: 18 Year
  Sex: Female
  Weight: 74.25 kg

DRUGS (6)
  1. VITAMIN C [Concomitant]
     Active Substance: ASCORBIC ACID
  2. AVELOX [Suspect]
     Active Substance: MOXIFLOXACIN HYDROCHLORIDE
     Indication: SINUSITIS
     Route: 048
     Dates: start: 20030915, end: 20030925
  3. ALBUTEROL. [Concomitant]
     Active Substance: ALBUTEROL
  4. HUMIRA [Concomitant]
     Active Substance: ADALIMUMAB
  5. ZOLOFT [Concomitant]
     Active Substance: SERTRALINE HYDROCHLORIDE
  6. SINGULAIR [Concomitant]
     Active Substance: MONTELUKAST SODIUM

REACTIONS (4)
  - Dehydration [None]
  - Clostridium difficile colitis [None]
  - Crohn^s disease [None]
  - Haematochezia [None]

NARRATIVE: CASE EVENT DATE: 20031001
